FAERS Safety Report 5410418-6 (Version None)
Quarter: 2007Q3

REPORT INFORMATION
  Report Type: 
  Country: None (occurrence: None)
  Receive Date: 20070808
  Receipt Date: 20070723
  Transmission Date: 20080115
  Serious: Yes (Life-Threatening, Other)
  Sender: FDA-Public Use
  Company Number: 159136ISR

PATIENT
  Age: 86 Year
  Sex: Female

DRUGS (1)
  1. QUININE [Suspect]
     Indication: MUSCLE SPASMS
     Dosage: 2DF
     Dates: start: 20070510, end: 20070713

REACTIONS (1)
  - PSYCHOTIC DISORDER [None]
